FAERS Safety Report 7876728-8 (Version None)
Quarter: 2011Q4

REPORT INFORMATION
  Report Type: 
  Country: None (occurrence: None)
  Receive Date: 20111031
  Receipt Date: 20111019
  Transmission Date: 20120403
  Serious: Yes (Other)
  Sender: FDA-Public Use
  Company Number: DE-ROCHE-1006497

PATIENT
  Age: 39 Year
  Sex: Male

DRUGS (2)
  1. MABTHERA [Suspect]
     Indication: LYMPHOMA
  2. BENDAMUSTINE [Concomitant]
     Indication: LYMPHOMA

REACTIONS (2)
  - BLINDNESS [None]
  - VISUAL IMPAIRMENT [None]
